FAERS Safety Report 21651539 (Version 1)
Quarter: 2022Q4

REPORT INFORMATION
  Report Type: Report from Study
  Country: US (occurrence: US)
  Receive Date: 20221128
  Receipt Date: 20221128
  Transmission Date: 20230113
  Serious: Yes (Other)
  Sender: FDA-Public Use
  Company Number: US-ABBVIE-4166116

PATIENT
  Sex: Female

DRUGS (5)
  1. HUMIRA [Suspect]
     Active Substance: ADALIMUMAB
     Indication: Product used for unknown indication
     Route: 058
  2. CREON [Suspect]
     Active Substance: PANCRELIPASE AMYLASE\PANCRELIPASE LIPASE\PANCRELIPASE PROTEASE
     Indication: Product used for unknown indication
     Route: 058
  3. Pfizer/BioNTech Covid [Concomitant]
     Indication: COVID-19 immunisation
     Dates: start: 20210312, end: 20210312
  4. Pfizer/BioNTech Covid [Concomitant]
     Indication: COVID-19 immunisation
     Dates: start: 20211021, end: 20211021
  5. Pfizer/BioNTech Covid [Concomitant]
     Indication: COVID-19 immunisation
     Dosage: BOOSTER
     Dates: start: 20220612, end: 20220612

REACTIONS (2)
  - Pancreatic failure [Unknown]
  - Colitis [Unknown]
